FAERS Safety Report 8137981-9 (Version None)
Quarter: 2012Q1

REPORT INFORMATION
  Report Type: 
  Country: None (occurrence: None)
  Receive Date: 20120215
  Receipt Date: 20120213
  Transmission Date: 20120608
  Serious: Yes (Other)
  Sender: FDA-Public Use
  Company Number: US-PFIZER INC-2012039624

PATIENT
  Sex: Female
  Weight: 87.98 kg

DRUGS (5)
  1. LISINOPRIL [Concomitant]
     Indication: HYPERTENSION
     Dosage: DAILY
  2. CELEBREX [Suspect]
     Indication: PAIN
     Dosage: 200 MG, DAILY
     Route: 048
     Dates: end: 20110101
  3. COREG [Concomitant]
     Indication: HYPERTENSION
     Dosage: 25 MG, 2X/DAY
  4. CELEBREX [Suspect]
     Indication: GAIT DISTURBANCE
     Dosage: 200 MG, DAILY
     Dates: start: 20110101, end: 20120101
  5. METFORMIN [Concomitant]
     Indication: DIABETES MELLITUS
     Dosage: UNK

REACTIONS (11)
  - PAIN IN JAW [None]
  - OSTEOARTHRITIS [None]
  - NECK PAIN [None]
  - DYSKINESIA [None]
  - MALAISE [None]
  - URINARY TRACT INFECTION [None]
  - DYSPHAGIA [None]
  - BONE PAIN [None]
  - MUSCULOSKELETAL PAIN [None]
  - APHAGIA [None]
  - GAIT DISTURBANCE [None]
